FAERS Safety Report 5044608-1 (Version None)
Quarter: 2006Q2

REPORT INFORMATION
  Report Type: 
  Country: None (occurrence: None)
  Receive Date: 20060629
  Receipt Date: 20060621
  Transmission Date: 20061013
  Serious: Yes (Other)
  Sender: FDA-Public Use
  Company Number: 805#9#2006-00082

PATIENT
  Age: 3 Day
  Sex: Female

DRUGS (8)
  1. ALPROSTADIL [Suspect]
     Indication: HEART DISEASE CONGENITAL
     Dosage: 20 NG/KG/MIN
     Route: 041
     Dates: start: 20051114, end: 20051117
  2. FLOMOXEF SODIUM (FLOMOXEF SODIUM) [Concomitant]
  3. DIAZEPAM [Concomitant]
  4. PENTAZOCINE LACTATE [Concomitant]
  5. CALCIUM GLUCONATE [Concomitant]
  6. AMINOPHYLLIN [Concomitant]
  7. MIDAZOLAM (MIDAZOLAM MALEATE) [Concomitant]
  8. HUMAN SERUM ALBUMIN (ALBUMIN NORMAL HUMAN SERUM) [Concomitant]

REACTIONS (1)
  - INFANTILE APNOEIC ATTACK [None]
